FAERS Safety Report 8541415 (Version 2)
Quarter: 2013Q1

REPORT INFORMATION
  Report Type: Spontaneous
  Country: US (occurrence: None)
  Receive Date: 20120425
  Receipt Date: 20130222
  Transmission Date: 20140127
  Serious: Yes (Hospitalization, Other)
  Sender: FDA-Public Use
  Company Number: JPI-P-020920

PATIENT
  Age: 66 Year
  Sex: Male

DRUGS (6)
  1. XYREM [Suspect]
     Indication: FIBROMYALGIA
     Dosage: 3 GM (1.5 GM, 2 IN 1 D), ORAL
     Route: 048
     Dates: start: 20070730
  2. BUPRENORPHINE AND NALOXONE [Concomitant]
  3. GABAPENTIN [Concomitant]
  4. DIAZEPAM [Concomitant]
  5. TEMAZEPAM [Concomitant]
  6. CLONIDINE [Concomitant]

REACTIONS (25)
  - Ulcer haemorrhage [None]
  - Loss of consciousness [None]
  - Personality change [None]
  - Dysphonia [None]
  - Poor quality sleep [None]
  - Middle insomnia [None]
  - Pain [None]
  - Weight decreased [None]
  - Therapeutic response decreased [None]
  - Abnormal sleep-related event [None]
  - Incorrect dose administered [None]
  - Insomnia [None]
  - Night sweats [None]
  - Anaemia [None]
  - Fibromyalgia [None]
  - Hyporeflexia [None]
  - Neuropathy peripheral [None]
  - Asthenia [None]
  - Androgen deficiency [None]
  - Tremor [None]
  - Depression [None]
  - Neck pain [None]
  - Anxiety [None]
  - Autonomic neuropathy [None]
  - Refusal of treatment by patient [None]
